FAERS Safety Report 21131239 (Version 1)
Quarter: 2022Q3

REPORT INFORMATION
  Report Type: Spontaneous
  Country: CN (occurrence: None)
  Receive Date: 20220726
  Receipt Date: 20220726
  Transmission Date: 20221026
  Serious: Yes (Other)
  Sender: FDA-Public Use
  Company Number: CN-ROCHE-3144359

PATIENT
  Age: 56 Year
  Sex: Male

DRUGS (21)
  1. AVASTIN [Suspect]
     Active Substance: BEVACIZUMAB
     Indication: Lung adenocarcinoma
     Route: 065
     Dates: start: 20200302, end: 20200504
  2. AVASTIN [Suspect]
     Active Substance: BEVACIZUMAB
     Route: 065
     Dates: start: 202109, end: 202111
  3. AVASTIN [Suspect]
     Active Substance: BEVACIZUMAB
     Route: 065
     Dates: start: 202112
  4. DACOMITINIB [Suspect]
     Active Substance: DACOMITINIB
     Indication: Lung adenocarcinoma
     Route: 048
     Dates: start: 20200531, end: 202107
  5. DACOMITINIB [Suspect]
     Active Substance: DACOMITINIB
     Route: 048
     Dates: start: 202107, end: 202109
  6. PEMETREXED [Concomitant]
     Active Substance: PEMETREXED
     Indication: Lung adenocarcinoma
     Dates: start: 20180512, end: 20180929
  7. PEMETREXED [Concomitant]
     Active Substance: PEMETREXED
     Dates: start: 20181004, end: 20190121
  8. PEMETREXED [Concomitant]
     Active Substance: PEMETREXED
     Dates: start: 202109, end: 202111
  9. CARBOPLATIN [Concomitant]
     Active Substance: CARBOPLATIN
     Indication: Lung adenocarcinoma
     Dates: start: 20180512, end: 20180929
  10. GEFITINIB [Concomitant]
     Active Substance: GEFITINIB
     Indication: Lung adenocarcinoma
     Dates: start: 20181004, end: 20190121
  11. GEFITINIB [Concomitant]
     Active Substance: GEFITINIB
     Dates: start: 201901, end: 201902
  12. PACLITAXEL [Concomitant]
     Active Substance: PACLITAXEL
     Indication: Lung adenocarcinoma
     Dates: start: 201901, end: 201902
  13. CISPLATIN [Concomitant]
     Active Substance: CISPLATIN
     Indication: Lung adenocarcinoma
     Dates: start: 201903, end: 201907
  14. GEMCITABINE [Concomitant]
     Active Substance: GEMCITABINE
     Indication: Lung adenocarcinoma
     Dates: start: 201903, end: 201907
  15. CATEQUENTINIB [Concomitant]
     Active Substance: CATEQUENTINIB
     Indication: Lung adenocarcinoma
     Dosage: DAY1-14
     Dates: start: 201903, end: 201907
  16. CATEQUENTINIB [Concomitant]
     Active Substance: CATEQUENTINIB
     Dosage: DAY1-14
     Dates: start: 201908
  17. CATEQUENTINIB [Concomitant]
     Active Substance: CATEQUENTINIB
     Dosage: DAY1-14
     Route: 048
     Dates: start: 202107, end: 202109
  18. CAMRELIZUMAB [Concomitant]
     Active Substance: CAMRELIZUMAB
     Indication: Lung adenocarcinoma
     Dosage: DAY1
     Dates: start: 20200302, end: 202005
  19. SINTILIMAB [Concomitant]
     Active Substance: SINTILIMAB
     Indication: Lung adenocarcinoma
     Dates: start: 202109, end: 202111
  20. NEDAPLATIN [Concomitant]
     Active Substance: NEDAPLATIN
     Indication: Lung adenocarcinoma
     Dosage: DAY1-2, 21 DAYS AS A CYCLE
     Dates: start: 202109, end: 202111
  21. FURMONERTINIB [Concomitant]
     Indication: Lung adenocarcinoma
     Route: 048
     Dates: start: 202112

REACTIONS (4)
  - Diarrhoea [Recovering/Resolving]
  - Rash [Unknown]
  - Asthenia [Unknown]
  - Myelosuppression [Unknown]

NARRATIVE: CASE EVENT DATE: 20210101
